FAERS Safety Report 11197206 (Version 1)
Quarter: 2015Q2

REPORT INFORMATION
  Report Type: Spontaneous
  Country: US (occurrence: US)
  Receive Date: 20150617
  Receipt Date: 20150617
  Transmission Date: 20150821
  Serious: No
  Sender: FDA-Public Use
  Company Number: US-SA-2014SA132539

PATIENT
  Age: 38 Year
  Sex: Male
  Weight: 80.2 kg

DRUGS (16)
  1. SODIUM CHLORIDE. [Concomitant]
     Active Substance: SODIUM CHLORIDE
  2. WATER. [Concomitant]
     Active Substance: WATER
  3. NORMAL SALINE [Concomitant]
     Active Substance: SODIUM CHLORIDE
  4. PERCOCET [Concomitant]
     Active Substance: ACETAMINOPHEN\OXYCODONE HYDROCHLORIDE
  5. DIAZEPAM. [Concomitant]
     Active Substance: DIAZEPAM
  6. TYLENOL [Concomitant]
     Active Substance: ACETAMINOPHEN
  7. FENTANYL. [Concomitant]
     Active Substance: FENTANYL
     Indication: PAIN
     Dosage: DOSE: 1 PATCH
  8. CEREZYME [Suspect]
     Active Substance: IMIGLUCERASE
     Indication: GAUCHER^S DISEASE
     Dosage: 5200 UNITS DOSE:63.69 UNIT(S)/KILOGRAM BODYWEIGHT
     Route: 042
     Dates: start: 1999
  9. OXYCODONE [Concomitant]
     Active Substance: OXYCODONE
     Indication: PAIN
  10. EPINEPHRINE. [Concomitant]
     Active Substance: EPINEPHRINE
  11. MELOXICAM. [Concomitant]
     Active Substance: MELOXICAM
     Indication: PAIN
  12. LYRICA [Concomitant]
     Active Substance: PREGABALIN
  13. IBUPROFEN. [Concomitant]
     Active Substance: IBUPROFEN
  14. MORPHINE [Concomitant]
     Active Substance: MORPHINE
     Indication: PAIN
  15. COLACE [Concomitant]
     Active Substance: DOCUSATE SODIUM
  16. CLARITIN [Concomitant]
     Active Substance: LORATADINE
     Indication: PREMEDICATION

REACTIONS (2)
  - Abdominal pain [Not Recovered/Not Resolved]
  - Gastrooesophageal reflux disease [Not Recovered/Not Resolved]

NARRATIVE: CASE EVENT DATE: 20140829
